FAERS Safety Report 9197535 (Version 1)
Quarter: 2013Q1

REPORT INFORMATION
  Report Type: Spontaneous
  Country: RU (occurrence: RU)
  Receive Date: 20130328
  Receipt Date: 20130328
  Transmission Date: 20140127
  Serious: Yes (Other)
  Sender: FDA-Public Use
  Company Number: RU-GLAXOSMITHKLINE-B0873573A

PATIENT
  Sex: Female
  Weight: 45 kg

DRUGS (4)
  1. TYVERB [Suspect]
     Indication: BREAST CANCER METASTATIC
     Dosage: 2G PER DAY
     Route: 048
     Dates: start: 20121121
  2. HERCEPTIN [Suspect]
     Indication: BREAST CANCER METASTATIC
     Route: 065
     Dates: start: 20121121
  3. ONDANSETRON [Concomitant]
     Route: 065
     Dates: start: 2012
  4. DICARBAMIN [Concomitant]
     Route: 065

REACTIONS (5)
  - Hepatotoxicity [Recovering/Resolving]
  - Transaminases increased [Recovering/Resolving]
  - Blood bilirubin increased [Unknown]
  - Diarrhoea [Recovered/Resolved]
  - Asthenia [Recovered/Resolved]
